FAERS Safety Report 13358348 (Version 1)
Quarter: 2017Q1

REPORT INFORMATION
  Report Type: Spontaneous
  Country: US (occurrence: US)
  Receive Date: 20170321
  Receipt Date: 20170321
  Transmission Date: 20170429
  Serious: Yes (Other)
  Sender: FDA-Public Use
  Company Number: None

PATIENT
  Age: 51 Year
  Sex: Male
  Weight: 108 kg

DRUGS (14)
  1. HCTA [Concomitant]
  2. CLOZAPINE. [Suspect]
     Active Substance: CLOZAPINE
     Indication: AFFECTIVE DISORDER
  3. CLOZAPINE. [Suspect]
     Active Substance: CLOZAPINE
     Indication: CRANIOCEREBRAL INJURY
  4. ENALAPRIL [Concomitant]
     Active Substance: ENALAPRIL
  5. NAPROXEN. [Concomitant]
     Active Substance: NAPROXEN
  6. RAPAFLO [Concomitant]
     Active Substance: SILODOSIN
  7. BACLOFEN. [Concomitant]
     Active Substance: BACLOFEN
  8. DIVALPROEX [Concomitant]
     Active Substance: DIVALPROEX SODIUM
  9. FENOFIBRATE. [Concomitant]
     Active Substance: FENOFIBRATE
  10. GABAPENTIN. [Concomitant]
     Active Substance: GABAPENTIN
  11. NOVOLIN [Concomitant]
     Active Substance: INSULIN HUMAN
  12. METFORMIN [Concomitant]
     Active Substance: METFORMIN HYDROCHLORIDE
  13. PROTONIX [Concomitant]
     Active Substance: PANTOPRAZOLE SODIUM
  14. METHYLPHENIDATE. [Concomitant]
     Active Substance: METHYLPHENIDATE

REACTIONS (3)
  - Pyrexia [None]
  - Confusional state [None]
  - Cardiomyopathy [None]
